FAERS Safety Report 4503680-5 (Version None)
Quarter: 2004Q4

REPORT INFORMATION
  Report Type: 
  Country: None (occurrence: None)
  Receive Date: 20041115
  Receipt Date: 20041104
  Transmission Date: 20050328
  Serious: No
  Sender: FDA-Public Use
  Company Number: 2004-121972-NL

PATIENT
  Age: 16 Year
  Sex: Female

DRUGS (3)
  1. MIRTAZAPINE [Suspect]
     Indication: DEPRESSION
     Dosage: 15 MG ORAL
     Route: 048
     Dates: start: 20041103, end: 20041103
  2. MIRTAZAPINE [Suspect]
     Indication: SLEEP DISORDER
     Dosage: 15 MG ORAL
     Route: 048
     Dates: start: 20041103, end: 20041103
  3. FLUOXETINE HYDROCHLORIDE [Concomitant]

REACTIONS (1)
  - CONVULSION [None]
